FAERS Safety Report 5010852-2 (Version None)
Quarter: 2006Q2

REPORT INFORMATION
  Report Type: 
  Country: None (occurrence: None)
  Receive Date: 20060525
  Receipt Date: 20060323
  Transmission Date: 20061013
  Serious: Yes (Hospitalization, Disabling)
  Sender: FDA-Public Use
  Company Number: DK-GLAXOSMITHKLINE-B0417433A

PATIENT
  Age: 62 Year
  Sex: Female

DRUGS (12)
  1. AVANDIA [Suspect]
     Dosage: 4MG UNKNOWN
     Route: 065
     Dates: start: 20001005, end: 20060215
  2. AMARYL [Concomitant]
     Indication: DRUG USE FOR UNKNOWN INDICATION
     Route: 065
  3. METFORMIN [Concomitant]
     Indication: DRUG USE FOR UNKNOWN INDICATION
     Route: 065
     Dates: start: 19950101
  4. SIMVASTATIN [Concomitant]
     Indication: DRUG USE FOR UNKNOWN INDICATION
     Route: 065
  5. COZAAR [Concomitant]
     Indication: DRUG USE FOR UNKNOWN INDICATION
     Route: 065
  6. ELTROXIN [Concomitant]
     Indication: DRUG USE FOR UNKNOWN INDICATION
     Route: 065
  7. BURINEX [Concomitant]
     Indication: DRUG USE FOR UNKNOWN INDICATION
     Route: 065
  8. SPIRIVA [Concomitant]
     Indication: DRUG USE FOR UNKNOWN INDICATION
     Route: 065
  9. KININ [Concomitant]
     Indication: DRUG USE FOR UNKNOWN INDICATION
     Route: 065
  10. SYMBICORT [Concomitant]
     Indication: DRUG USE FOR UNKNOWN INDICATION
     Dosage: 3U PER DAY
     Route: 065
  11. PETHIDINE [Concomitant]
     Route: 042
  12. APOZEPAM [Concomitant]
     Route: 042

REACTIONS (29)
  - BLOOD ALBUMIN DECREASED [None]
  - BLOOD BILIRUBIN INCREASED [None]
  - BLOOD CALCIUM DECREASED [None]
  - BLOOD CHOLESTEROL ABNORMAL [None]
  - BLOOD CREATININE INCREASED [None]
  - BLOOD PHOSPHORUS ABNORMAL [None]
  - CHEST PAIN [None]
  - COAGULATION FACTOR INCREASED [None]
  - CONSTIPATION [None]
  - DRY MOUTH [None]
  - FATIGUE [None]
  - FLATULENCE [None]
  - GAMMA-GLUTAMYLTRANSFERASE INCREASED [None]
  - HAEMATEMESIS [None]
  - HAEMATOCHEZIA [None]
  - HAEMOGLOBIN INCREASED [None]
  - HAEMORRHOIDS [None]
  - HEPATIC CIRRHOSIS [None]
  - HEPATIC STEATOSIS [None]
  - LYMPHOCYTE COUNT DECREASED [None]
  - PAIN [None]
  - PAIN IN EXTREMITY [None]
  - POLYMYALGIA [None]
  - PORTAL HYPERTENSIVE GASTROPATHY [None]
  - SERUM FERRITIN INCREASED [None]
  - SHOULDER PAIN [None]
  - SKIN DISCOLOURATION [None]
  - THYROXINE INCREASED [None]
  - VARICELLA [None]
